FAERS Safety Report 4966449-3 (Version None)
Quarter: 2006Q1

REPORT INFORMATION
  Report Type: 
  Country: None (occurrence: None)
  Receive Date: 20060201
  Receipt Date: 20051130
  Transmission Date: 20060701
  Serious: No
  Sender: FDA-Public Use
  Company Number: 2005PV005106

PATIENT
  Age: 47 Year
  Sex: Female
  Weight: 141.9759 kg

DRUGS (1)
  1. BYETTA [Suspect]
     Indication: GLUCOSE TOLERANCE IMPAIRED
     Dosage: 5 MCG;BID;SC
     Route: 058
     Dates: start: 20051025, end: 20051125

REACTIONS (5)
  - DIARRHOEA [None]
  - FLATULENCE [None]
  - NAUSEA [None]
  - WEIGHT [None]
  - WEIGHT DECREASED [None]
